FAERS Safety Report 7688460-4 (Version None)
Quarter: 2011Q3

REPORT INFORMATION
  Report Type: 
  Country: None (occurrence: None)
  Receive Date: 20110817
  Receipt Date: 20110809
  Transmission Date: 20111222
  Serious: Yes (Other)
  Sender: FDA-Public Use
  Company Number: GB-ROCHE-796339

PATIENT

DRUGS (1)
  1. HERCEPTIN [Suspect]
     Route: 065
     Dates: end: 20100701

REACTIONS (8)
  - EXTRASYSTOLES [None]
  - SNEEZING [None]
  - DIZZINESS [None]
  - RHINORRHOEA [None]
  - MUSCLE SPASMS [None]
  - VISION BLURRED [None]
  - ABDOMINAL PAIN [None]
  - COUGH [None]
